FAERS Safety Report 4368460-2 (Version None)
Quarter: 2004Q2

REPORT INFORMATION
  Report Type: 
  Country: None (occurrence: None)
  Receive Date: 20040528
  Receipt Date: 20040513
  Transmission Date: 20050107
  Serious: Yes (Hospitalization)
  Sender: FDA-Public Use
  Company Number: 2004-SW-00138SW

PATIENT
  Age: 52 Year
  Sex: Male

DRUGS (2)
  1. ATROVENT [Suspect]
     Indication: CHRONIC OBSTRUCTIVE AIRWAYS DISEASE
     Dosage: IH
     Route: 055
     Dates: end: 20031123
  2. PULMICORT [Concomitant]

REACTIONS (6)
  - ATAXIA [None]
  - CONFUSIONAL STATE [None]
  - COORDINATION ABNORMAL [None]
  - DYSPNOEA [None]
  - METABOLIC ACIDOSIS [None]
  - POISONING [None]
